FAERS Safety Report 10035831 (Version 1)
Quarter: 2014Q1

REPORT INFORMATION
  Report Type: Spontaneous
  Country: US (occurrence: US)
  Receive Date: 20140325
  Receipt Date: 20140325
  Transmission Date: 20141002
  Serious: No
  Sender: FDA-Public Use
  Company Number: US-BAYER-2014-037067

PATIENT
  Age: 62 Year
  Sex: Female

DRUGS (1)
  1. ALEVE CAPLET [Suspect]
     Indication: INFLAMMATION
     Dosage: 1 DF, PRN
     Route: 048

REACTIONS (4)
  - Dyspepsia [None]
  - Gastric disorder [None]
  - Gastrooesophageal reflux disease [None]
  - Intentional drug misuse [None]
